FAERS Safety Report 13065807 (Version 3)
Quarter: 2017Q2

REPORT INFORMATION
  Report Type: Spontaneous
  Country: US (occurrence: US)
  Receive Date: 20161227
  Receipt Date: 20170516
  Transmission Date: 20170830
  Serious: Yes (Other)
  Sender: FDA-Public Use
  Company Number: US-PFIZER INC-2016596056

PATIENT
  Age: 69 Year
  Sex: Female
  Weight: 79 kg

DRUGS (4)
  1. SYNTHROID [Concomitant]
     Active Substance: LEVOTHYROXINE SODIUM
     Indication: THYROID THERAPY
     Dosage: 0.75 MG, 1X/DAY(EVERY MORNING)
     Route: 048
  2. GENOTROPIN [Suspect]
     Active Substance: SOMATROPIN
     Dosage: UNK(EVERY THIRD DAY)
  3. GENOTROPIN [Suspect]
     Active Substance: SOMATROPIN
     Dosage: UNK(TAKING IT EVERY FOUR DAYS)
  4. GENOTROPIN [Suspect]
     Active Substance: SOMATROPIN
     Indication: GROWTH HORMONE DEFICIENCY
     Dosage: 0.3 MG, 1X/DAY  (AT NIGHT)

REACTIONS (4)
  - Pituitary tumour [Unknown]
  - Product use issue [Unknown]
  - Headache [Unknown]
  - Sinusitis [Unknown]
